FAERS Safety Report 18051576 (Version 1)
Quarter: 2020Q3

REPORT INFORMATION
  Report Type: Spontaneous
  Country: US (occurrence: US)
  Receive Date: 20200721
  Receipt Date: 20200721
  Transmission Date: 20201103
  Serious: No
  Sender: FDA-Public Use
  Company Number: US-NEUROCRINE BIOSCIENCES INC.-2020NBI02472

PATIENT
  Age: 43 Year
  Sex: Female

DRUGS (1)
  1. INGREZZA [Suspect]
     Active Substance: VALBENAZINE
     Indication: DYSKINESIA

REACTIONS (5)
  - Peripheral swelling [Unknown]
  - Feeling abnormal [Unknown]
  - Hypokinesia [Unknown]
  - Gait inability [Unknown]
  - Dysphagia [Unknown]
